FAERS Safety Report 8150939-9 (Version None)
Quarter: 2012Q1

REPORT INFORMATION
  Report Type: 
  Country: None (occurrence: None)
  Receive Date: 20120220
  Receipt Date: 20120214
  Transmission Date: 20120608
  Serious: Yes (Other)
  Sender: FDA-Public Use
  Company Number: US-PFIZER INC-2012040221

PATIENT
  Sex: Female
  Weight: 59 kg

DRUGS (3)
  1. SYNTHROID [Concomitant]
     Indication: HYPOTHYROIDISM
     Dosage: UNK
  2. CLARITHROMYCIN [Interacting]
     Indication: SINUSITIS
     Dosage: UNK
     Dates: start: 20111104
  3. PREMPRO [Suspect]
     Indication: MENOPAUSAL SYMPTOMS
     Dosage: 0.45/1.5 MG, 1X/DAY
     Route: 048
     Dates: start: 20091201

REACTIONS (9)
  - METABOLIC DISORDER [None]
  - BREAST TENDERNESS [None]
  - DRUG INTERACTION [None]
  - CONDITION AGGRAVATED [None]
  - BLOOD OESTROGEN INCREASED [None]
  - MUSCULOSKELETAL PAIN [None]
  - ERYTHEMA NODOSUM [None]
  - HYPOTHYROIDISM [None]
  - MAMMOGRAM ABNORMAL [None]
